FAERS Safety Report 6447038-0 (Version None)
Quarter: 2009Q4

REPORT INFORMATION
  Report Type: 
  Country: None (occurrence: None)
  Receive Date: 20091119
  Receipt Date: 20091110
  Transmission Date: 20100525
  Serious: Yes (Other)
  Sender: FDA-Public Use
  Company Number: FR-ASTRAZENECA-2009SE19272

PATIENT
  Age: 50 Year
  Sex: Female

DRUGS (3)
  1. DIPRIVAN [Suspect]
     Indication: GENERAL ANAESTHESIA
     Route: 042
     Dates: start: 19990101, end: 19990101
  2. FENTANYL-100 [Suspect]
     Indication: GENERAL ANAESTHESIA
     Route: 042
     Dates: start: 19990101, end: 19990101
  3. ISOFLURANE [Suspect]
     Indication: GENERAL ANAESTHESIA
     Route: 065
     Dates: start: 19990101, end: 19990101

REACTIONS (1)
  - SYMPATHETIC POSTERIOR CERVICAL SYNDROME [None]
